FAERS Safety Report 22389165 (Version 1)
Quarter: 2023Q2

REPORT INFORMATION
  Report Type: Spontaneous
  Country: JP (occurrence: JP)
  Receive Date: 20230531
  Receipt Date: 20230531
  Transmission Date: 20230722
  Serious: Yes (Other)
  Sender: FDA-Public Use
  Company Number: JP-SUN PHARMACEUTICAL INDUSTRIES LTD-2023RR-391959

PATIENT
  Age: 68 Year
  Sex: Female

DRUGS (3)
  1. PREDNISOLONE [Suspect]
     Active Substance: PREDNISOLONE
     Indication: Graves^ disease
     Dosage: 40 MILLIGRAM, DAILY
     Route: 048
  2. METHIMAZOLE [Suspect]
     Active Substance: METHIMAZOLE
     Indication: Graves^ disease
     Dosage: FOR 18 YEARS
     Route: 065
  3. METHYLPREDNISOLONE [Suspect]
     Active Substance: METHYLPREDNISOLONE
     Indication: Graves^ disease
     Dosage: 1000 MILLIGRAM, DAILY, FOR 3 DAYS
     Route: 042

REACTIONS (3)
  - Vasculitis [Unknown]
  - Condition aggravated [Unknown]
  - Acute kidney injury [Unknown]
